FAERS Safety Report 7907215-6 (Version None)
Quarter: 2011Q4

REPORT INFORMATION
  Report Type: 
  Country: None (occurrence: None)
  Receive Date: 20111110
  Receipt Date: 20111107
  Transmission Date: 20120403
  Serious: Yes (Death, Hospitalization, Other)
  Sender: FDA-Public Use
  Company Number: US-ABBOTT-11P-163-0871964-00

PATIENT
  Sex: Male
  Weight: 86.26 kg

DRUGS (1)
  1. HUMIRA [Suspect]
     Indication: RHEUMATOID ARTHRITIS
     Route: 058
     Dates: end: 20090101

REACTIONS (7)
  - PROSTATE CANCER METASTATIC [None]
  - PROSTATE CANCER [None]
  - CONFUSIONAL STATE [None]
  - ORCHIDECTOMY [None]
  - HOSPITALISATION [None]
  - DRUG INTOLERANCE [None]
  - MALAISE [None]
